FAERS Safety Report 7990261-4 (Version None)
Quarter: 2011Q4

REPORT INFORMATION
  Report Type: 
  Country: None (occurrence: None)
  Receive Date: 20111219
  Receipt Date: 20110209
  Transmission Date: 20120403
  Serious: No
  Sender: FDA-Public Use
  Company Number: US-ASTRAZENECA-2011SE08043

PATIENT
  Age: 54 Year
  Sex: Male
  Weight: 99.8 kg

DRUGS (8)
  1. ASPIRIN [Concomitant]
  2. AMOXICILLIN [Concomitant]
     Indication: SINUSITIS
  3. METOPROLOL TARTRATE [Concomitant]
  4. VITAMIN TAB [Concomitant]
  5. METFORMIN HCL [Concomitant]
  6. FISH OIL [Concomitant]
  7. CRESTOR [Suspect]
     Indication: HYPERTRIGLYCERIDAEMIA
     Dosage: DAILY.
     Route: 048
     Dates: start: 20110208
  8. HYZAAR [Concomitant]

REACTIONS (3)
  - COLD SWEAT [None]
  - FEELING COLD [None]
  - FATIGUE [None]
